FAERS Safety Report 7708099-1 (Version None)
Quarter: 2011Q3

REPORT INFORMATION
  Report Type: 
  Country: None (occurrence: None)
  Receive Date: 20110825
  Receipt Date: 20110816
  Transmission Date: 20111222
  Serious: Yes (Hospitalization)
  Sender: FDA-Public Use
  Company Number: US-BIOGENIDEC-2011BI031745

PATIENT
  Age: 27 Year
  Sex: Female

DRUGS (1)
  1. TYSABRI [Suspect]
     Indication: MULTIPLE SCLEROSIS
     Route: 042
     Dates: start: 20110125

REACTIONS (7)
  - CONSTIPATION [None]
  - TREMOR [None]
  - COGNITIVE DISORDER [None]
  - DECREASED INTEREST [None]
  - WEIGHT DECREASED [None]
  - BALANCE DISORDER [None]
  - BLADDER DISORDER [None]
